FAERS Safety Report 5938653-9 (Version None)
Quarter: 2008Q4

REPORT INFORMATION
  Report Type: 
  Country: None (occurrence: None)
  Receive Date: 20081103
  Receipt Date: 20081021
  Transmission Date: 20090506
  Serious: Yes (Hospitalization, Other)
  Sender: FDA-Public Use
  Company Number: MX-ROCHE-593437

PATIENT
  Age: 49 Year
  Sex: Female
  Weight: 100 kg

DRUGS (4)
  1. PEGASYS [Suspect]
     Indication: HEPATITIS C
     Dosage: DOSAGE REGIMEN REPORTED AS: WEEKLY.
     Route: 058
     Dates: start: 20071122, end: 20080516
  2. PEGASYS [Suspect]
     Dosage: DOSAGE REGIMEN REPORTED AS: WEEKLY
     Route: 058
     Dates: start: 20080519
  3. COPEGUS [Suspect]
     Indication: HEPATITIS C
     Dosage: DOSAGE REGIMEN REPORTED AS: DAILY
     Route: 048
     Dates: start: 20071122, end: 20080516
  4. COPEGUS [Suspect]
     Dosage: DOSAGE REGIMEN REPORTED AS: DAILY
     Route: 048
     Dates: start: 20080519

REACTIONS (4)
  - ANAEMIA [None]
  - BLOOD PRESSURE INCREASED [None]
  - OEDEMA PERIPHERAL [None]
  - PRURITUS GENERALISED [None]
